FAERS Safety Report 5220581-8 (Version None)
Quarter: 2007Q1

REPORT INFORMATION
  Report Type: 
  Country: None (occurrence: None)
  Receive Date: 20070125
  Receipt Date: 20070125
  Transmission Date: 20070707
  Serious: Yes (Hospitalization)
  Sender: FDA-Public Use
  Company Number: None

PATIENT
  Sex: Male

DRUGS (7)
  1. LITHIUM CARBONATE [Suspect]
     Indication: BIPOLAR DISORDER
     Dosage: 300MG PO TID PRIOR TO ADMISSION
     Route: 048
  2. CLONAZEPAM [Concomitant]
  3. CARDIZEM [Concomitant]
  4. SYNTHROID [Concomitant]
  5. RISPERDAL [Concomitant]
  6. DEPAKOTE [Concomitant]
  7. METAMUCIL [Concomitant]

REACTIONS (3)
  - DRUG LEVEL INCREASED [None]
  - DYSPHAGIA [None]
  - TREMOR [None]
